FAERS Safety Report 5135540-3 (Version None)
Quarter: 2006Q4

REPORT INFORMATION
  Report Type: 
  Country: None (occurrence: None)
  Receive Date: 20061024
  Receipt Date: 20061024
  Transmission Date: 20070319
  Serious: Yes (Hospitalization)
  Sender: FDA-Public Use
  Company Number: None

PATIENT
  Age: 58 Year
  Sex: Male
  Weight: 189.9 kg

DRUGS (10)
  1. ROSIGLITAZONE [Suspect]
     Indication: DIABETES MELLITUS
     Dosage: 8 MG DAILY
     Dates: start: 20050204, end: 20060719
  2. FELODIPINE [Concomitant]
  3. LISINOPRIL [Concomitant]
  4. GLYBURIDE [Concomitant]
  5. ATENOLOL [Concomitant]
  6. ASPIRIN [Concomitant]
  7. ENOXAPARIN SODIUM [Concomitant]
  8. FOLIC ACID [Concomitant]
  9. METFORMIN HYDROCHLORIDE [Concomitant]
  10. SIMVASTATIN [Concomitant]

REACTIONS (1)
  - CARDIAC FAILURE CONGESTIVE [None]
